FAERS Safety Report 6542395-9 (Version None)
Quarter: 2010Q1

REPORT INFORMATION
  Report Type: 
  Country: None (occurrence: None)
  Receive Date: 20100119
  Receipt Date: 20100107
  Transmission Date: 20100710
  Serious: Yes (Hospitalization, Disabling)
  Sender: FDA-Public Use
  Company Number: PHHY2009FR55617

PATIENT
  Sex: Female
  Weight: 53 kg

DRUGS (2)
  1. ACLASTA [Suspect]
     Indication: OSTEOPOROSIS
     Dosage: 5 MG/YEAR
     Dates: start: 20080101
  2. ACLASTA [Suspect]
     Dosage: 5 MG/YEAR
     Dates: start: 20090221

REACTIONS (11)
  - ABDOMINAL PAIN [None]
  - ARTHRALGIA [None]
  - ASTHENIA [None]
  - CYTOLYTIC HEPATITIS [None]
  - INFLUENZA LIKE ILLNESS [None]
  - JOINT SWELLING [None]
  - MYALGIA [None]
  - NAUSEA [None]
  - PANCREATIC DISORDER [None]
  - POLYARTHRITIS [None]
  - TRANSAMINASES INCREASED [None]
